FAERS Safety Report 19501489 (Version 1)
Quarter: 2021Q3

REPORT INFORMATION
  Report Type: Other
  Country: US (occurrence: US)
  Receive Date: 20210707
  Receipt Date: 20210707
  Transmission Date: 20211014
  Serious: No
  Sender: FDA-Public Use
  Company Number: US-ROCHE-2856966

PATIENT
  Sex: Male
  Weight: 60.38 kg

DRUGS (21)
  1. ONDANSETRON HCL [Concomitant]
     Active Substance: ONDANSETRON HYDROCHLORIDE
     Indication: NAUSEA
     Route: 048
     Dates: start: 2019
  2. TIZANIDINE. [Suspect]
     Active Substance: TIZANIDINE
     Indication: MUSCLE SPASMS
     Dosage: 1.5 4MG TABLETS AT ONCE
     Route: 048
     Dates: start: 2019
  3. TYLENOL EXTRA STRENGTH [Concomitant]
     Active Substance: ACETAMINOPHEN
     Indication: PAIN
     Dosage: 1000MG TO 1500MG UP TO THREE TIMES PER DAY ;ONGOING: YES
     Route: 048
  4. VITAMIN D3 [Suspect]
     Active Substance: CHOLECALCIFEROL
     Indication: VITAMIN D DEFICIENCY
     Dosage: 50MCG/2000UNITS ;ONGOING: NO
     Route: 048
     Dates: start: 202105
  5. TIZANIDINE. [Suspect]
     Active Substance: TIZANIDINE
     Route: 048
     Dates: start: 2020, end: 2020
  6. MECLIZINE [Concomitant]
     Active Substance: MECLIZINE HYDROCHLORIDE
     Indication: VERTIGO
     Route: 048
     Dates: start: 2019
  7. ONDANSETRON HCL [Concomitant]
     Active Substance: ONDANSETRON HYDROCHLORIDE
     Indication: VOMITING
  8. ALBUTEROL SULFATE HFA [Concomitant]
     Active Substance: ALBUTEROL SULFATE
     Indication: DYSPNOEA
     Dosage: EVERY 6 HORUS ;ONGOING: YES
     Route: 055
     Dates: start: 202003
  9. TOPIRAMATE. [Suspect]
     Active Substance: TOPIRAMATE
     Indication: MUSCLE SPASMS
     Route: 048
     Dates: start: 202010, end: 202010
  10. MAGNESIUM OXIDE. [Concomitant]
     Active Substance: MAGNESIUM OXIDE
     Indication: MUSCLE SPASMS
     Route: 048
     Dates: start: 2019
  11. PHENYLEPHRINE HCL [Concomitant]
     Active Substance: PHENYLEPHRINE HYDROCHLORIDE
     Route: 048
     Dates: start: 202003
  12. OCREVUS [Suspect]
     Active Substance: OCRELIZUMAB
     Indication: PROGRESSIVE MULTIPLE SCLEROSIS
     Route: 042
     Dates: start: 2019
  13. TOPIRAMATE. [Suspect]
     Active Substance: TOPIRAMATE
     Route: 048
     Dates: start: 2019
  14. BACLOFEN. [Suspect]
     Active Substance: BACLOFEN
     Indication: MUSCLE SPASMS
     Route: 048
  15. ALBUTEROL SULFATE HFA [Concomitant]
     Active Substance: ALBUTEROL SULFATE
     Indication: WHEEZING
  16. MIDODRINE HCL [Concomitant]
     Active Substance: MIDODRINE HYDROCHLORIDE
     Indication: HYPOTENSION
     Route: 048
     Dates: start: 2020
  17. OCREVUS [Suspect]
     Active Substance: OCRELIZUMAB
     Route: 042
  18. VITAMIN D3 [Suspect]
     Active Substance: CHOLECALCIFEROL
     Route: 048
     Dates: start: 202105
  19. CYPROHEPATADINE [Concomitant]
     Active Substance: CYPROHEPTADINE HYDROCHLORIDE
     Route: 048
     Dates: start: 2019
  20. OMEPRAZOLE. [Concomitant]
     Active Substance: OMEPRAZOLE
     Indication: DYSPEPSIA
     Route: 048
  21. OXYBUTYNIN CHLORIDE ER [Concomitant]
     Active Substance: OXYBUTYNIN CHLORIDE
     Route: 048
     Dates: start: 2020

REACTIONS (10)
  - Fall [Recovered/Resolved]
  - Dizziness [Not Recovered/Not Resolved]
  - Heart rate irregular [Not Recovered/Not Resolved]
  - Emotional disorder [Recovered/Resolved]
  - Anger [Recovered/Resolved]
  - Swelling [Not Recovered/Not Resolved]
  - Vitamin D decreased [Recovered/Resolved]
  - Weight decreased [Recovering/Resolving]
  - COVID-19 [Recovered/Resolved]
  - Hypotension [Not Recovered/Not Resolved]

NARRATIVE: CASE EVENT DATE: 2020
